FAERS Safety Report 4965750-7 (Version None)
Quarter: 2006Q2

REPORT INFORMATION
  Report Type: 
  Country: None (occurrence: None)
  Receive Date: 20060405
  Receipt Date: 20060405
  Transmission Date: 20061013
  Serious: Yes (Other)
  Sender: FDA-Public Use
  Company Number: None

PATIENT
  Age: 59 Year
  Sex: Female
  Weight: 54.4316 kg

DRUGS (1)
  1. VOLTAREN [Suspect]
     Indication: ARTHRITIS
     Dosage: ONE TABLET   TWICE A DAY   PO
     Route: 048
     Dates: start: 20060309, end: 20060323

REACTIONS (3)
  - DYSKINESIA [None]
  - PARALYSIS [None]
  - TREMOR [None]
